FAERS Safety Report 7068907-7 (Version None)
Quarter: 2010Q4

REPORT INFORMATION
  Report Type: 
  Country: None (occurrence: None)
  Receive Date: 20101028
  Receipt Date: 20101020
  Transmission Date: 20110411
  Serious: Yes (Other)
  Sender: FDA-Public Use
  Company Number: US-SANOFI-AVENTIS-2010SA064301

PATIENT
  Age: 87 Year
  Sex: Female

DRUGS (10)
  1. MULTAQ [Suspect]
     Indication: ATRIAL FIBRILLATION
     Route: 048
     Dates: start: 20100409
  2. TERCONAZOLE [Suspect]
     Route: 067
     Dates: start: 20100813, end: 20100816
  3. LASIX [Concomitant]
  4. POTASSIUM CHLORIDE [Concomitant]
  5. PANTOPRAZOLE [Concomitant]
  6. METOPROLOL [Concomitant]
  7. COUMADIN [Concomitant]
  8. PREMARIN [Concomitant]
  9. ALL OTHER THERAPEUTIC PRODUCTS [Concomitant]
  10. AMIODARONE [Concomitant]

REACTIONS (1)
  - ATRIAL FIBRILLATION [None]
